FAERS Safety Report 8984807 (Version 2)
Quarter: 2013Q2

REPORT INFORMATION
  Report Type: Spontaneous
  Country: US (occurrence: US)
  Receive Date: 20121226
  Receipt Date: 20130618
  Transmission Date: 20140414
  Serious: Yes (Hospitalization)
  Sender: FDA-Public Use
  Company Number: US-BAYER-2012-134822

PATIENT
  Age: 17 Year
  Sex: Female
  Weight: 81.63 kg

DRUGS (4)
  1. YASMIN [Suspect]
     Dosage: UNK
     Dates: start: 200406, end: 200409
  2. ADDERALL [Concomitant]
     Indication: ATTENTION DEFICIT/HYPERACTIVITY DISORDER
     Dosage: UNK
     Dates: start: 200408
  3. MULTIVITAMINS [Concomitant]
  4. DEMEROL [Concomitant]
     Indication: PAIN

REACTIONS (9)
  - Pulmonary embolism [None]
  - Chest pain [None]
  - Dyspnoea [None]
  - Injury [None]
  - Pain [None]
  - Pain [None]
  - Emotional distress [None]
  - General physical health deterioration [None]
  - Anxiety [None]
